FAERS Safety Report 11110389 (Version 1)
Quarter: 2015Q2

REPORT INFORMATION
  Report Type: Spontaneous
  Country: FR (occurrence: FR)
  Receive Date: 20150513
  Receipt Date: 20150513
  Transmission Date: 20150821
  Serious: Yes (Hospitalization)
  Sender: FDA-Public Use
  Company Number: FR-ASTRAZENECA-2015SE43171

PATIENT
  Age: 31772 Day
  Sex: Female

DRUGS (4)
  1. METFORMINE [Concomitant]
     Active Substance: METFORMIN HYDROCHLORIDE
  2. DIGOXINE [Suspect]
     Active Substance: DIGOXIN
     Route: 048
     Dates: end: 20150302
  3. INEXIUM [Suspect]
     Active Substance: ESOMEPRAZOLE
     Route: 048
     Dates: end: 20150302
  4. LAROXYL [Concomitant]
     Active Substance: AMITRIPTYLINE

REACTIONS (5)
  - Hyponatraemia [Recovered/Resolved]
  - Cardioactive drug level increased [Recovered/Resolved]
  - Injury [Recovered/Resolved]
  - Fall [Recovered/Resolved]
  - Loss of consciousness [Recovered/Resolved]

NARRATIVE: CASE EVENT DATE: 20150302
